FAERS Safety Report 9055185 (Version 3)
Quarter: 2013Q2

REPORT INFORMATION
  Report Type: Spontaneous
  Country: CA (occurrence: CA)
  Receive Date: 20130206
  Receipt Date: 20130415
  Transmission Date: 20140414
  Serious: Yes (Other)
  Sender: FDA-Public Use
  Company Number: CA-GENZYME-RENA-1001729

PATIENT
  Age: 88 Year
  Sex: 0
  Weight: 65 kg

DRUGS (3)
  1. RENVELA [Suspect]
     Indication: HYPERPHOSPHATAEMIA
     Dosage: 800 MG, TID
     Route: 048
     Dates: start: 20121212
  2. DILANTIN [Concomitant]
     Indication: EPILEPSY
     Dosage: 200 UNK, QD
     Route: 065
  3. DILANTIN [Concomitant]
     Dosage: 300 UNK, QD
     Route: 065

REACTIONS (3)
  - Drug interaction [Recovered/Resolved]
  - Cerebrovascular accident [Unknown]
  - Aphasia [Recovered/Resolved]
